FAERS Safety Report 10901634 (Version 1)
Quarter: 2015Q1

REPORT INFORMATION
  Report Type: Spontaneous
  Country: US (occurrence: US)
  Receive Date: 20150310
  Receipt Date: 20150310
  Transmission Date: 20150721
  Serious: No
  Sender: FDA-Public Use
  Company Number: US-009507513-1502USA010853

PATIENT
  Age: 31 Year
  Sex: Female
  Weight: 56.69 kg

DRUGS (1)
  1. NEXPLANON [Suspect]
     Active Substance: ETONOGESTREL
     Indication: CONTRACEPTION
     Dosage: 68 MG/ 3 YEARS
     Route: 059
     Dates: start: 20150220

REACTIONS (3)
  - Device deployment issue [Unknown]
  - Muscular weakness [Unknown]
  - Implant site pain [Unknown]

NARRATIVE: CASE EVENT DATE: 20150224
